FAERS Safety Report 4300644-1 (Version None)
Quarter: 2004Q1

REPORT INFORMATION
  Report Type: 
  Country: None (occurrence: None)
  Receive Date: 20040218
  Receipt Date: 20040212
  Transmission Date: 20041129
  Serious: Yes (Hospitalization)
  Sender: FDA-Public Use
  Company Number: 2004196620FR

PATIENT
  Age: 46 Year
  Sex: Male

DRUGS (5)
  1. SULFASALAZINE [Suspect]
     Indication: RHEUMATOID ARTHRITIS
     Dosage: 500 MG, QID, ORAL
     Route: 048
     Dates: start: 20031013, end: 20031204
  2. SOMAC(PANTOPRAZOLE) TABLET [Suspect]
     Dosage: 20 MG, QD, ORAL
     Route: 048
     Dates: start: 20030315, end: 20031204
  3. ALLOPURINOL [Suspect]
     Indication: GOUT
     Dosage: 1 DF, ORAL
     Route: 048
     Dates: start: 20030315, end: 20031204
  4. INIPOMP(PANTOPRAZOLE) [Suspect]
     Indication: PROPHYLAXIS
     Dosage: 20 MG DAILY, ORAL
     Route: 048
     Dates: start: 20030315, end: 20031204
  5. FOSAMAX [Suspect]
     Indication: OSTEOPOROSIS
     Dosage: 70 MG, ORAL
     Route: 048
     Dates: start: 20030315, end: 20031204

REACTIONS (1)
  - AGRANULOCYTOSIS [None]
